FAERS Safety Report 19805809 (Version 2)
Quarter: 2022Q3

REPORT INFORMATION
  Report Type: Spontaneous
  Country: US (occurrence: US)
  Receive Date: 20210908
  Receipt Date: 20220909
  Transmission Date: 20221027
  Serious: No
  Sender: FDA-Public Use
  Company Number: US-ASTELLAS-2021US010225

PATIENT
  Sex: Male

DRUGS (2)
  1. XTANDI [Suspect]
     Active Substance: ENZALUTAMIDE
     Indication: Prostate cancer
     Dosage: UNK UNK, UNKNOWN FREQ.
     Route: 065
     Dates: start: 20201201
  2. CASODEX [Suspect]
     Active Substance: BICALUTAMIDE
     Indication: Product used for unknown indication
     Dosage: UNK UNK, UNKNOWN FREQ.
     Route: 065
     Dates: start: 20201201

REACTIONS (24)
  - Scratch [Unknown]
  - Renal disorder [Unknown]
  - Flank pain [Unknown]
  - Haematuria [Unknown]
  - Dysuria [Unknown]
  - Pollakiuria [Unknown]
  - Micturition urgency [Unknown]
  - Hot flush [Unknown]
  - Alopecia [Unknown]
  - Hair growth abnormal [Unknown]
  - Swelling [Recovering/Resolving]
  - Oedema peripheral [Recovering/Resolving]
  - General physical condition abnormal [Unknown]
  - Skin atrophy [Unknown]
  - Weight decreased [Recovered/Resolved]
  - Fatigue [Not Recovered/Not Resolved]
  - Memory impairment [Not Recovered/Not Resolved]
  - Head discomfort [Unknown]
  - Weight increased [Unknown]
  - Gynaecomastia [Unknown]
  - Testicular retraction [Unknown]
  - Coronavirus infection [Unknown]
  - Blood urine present [Unknown]
  - Asthenia [Unknown]
